FAERS Safety Report 20668637 (Version 1)
Quarter: 2022Q2

REPORT INFORMATION
  Report Type: Spontaneous
  Country: US (occurrence: US)
  Receive Date: 20220404
  Receipt Date: 20220404
  Transmission Date: 20220721
  Serious: No
  Sender: FDA-Public Use
  Company Number: US-GALDERMA-US2022003246

PATIENT

DRUGS (6)
  1. PROACTIV MD ADAPALENE ACNE TREATMENT [Suspect]
     Active Substance: ADAPALENE
     Indication: Acne
     Dosage: 1 DOSAGE FORM, BID, ONCE DURING THE DAY AND ONCE DURING THE NIGHT
     Route: 061
     Dates: start: 20220314, end: 20220315
  2. Proactiv MD Ultra Hydrating Moisturizer [Concomitant]
     Indication: Acne
     Dosage: 1 DOSAGE FORM, BID, ONCE DURING THE DAY AND ONCE DURING THE NIGHT
     Route: 061
     Dates: start: 20220314, end: 20220315
  3. Proactiv MD Ultra Hydrating Moisturizer [Concomitant]
     Dosage: 1 DOSAGE FORM, BID, ONCE DURING THE DAY AND ONCE DURING THE NIGHT
     Route: 061
     Dates: start: 20220314, end: 20220315
  4. Proactiv MD Ultra Gentle Cleanser [Concomitant]
     Indication: Acne
     Dosage: 1 DOSAGE FORM, BID, ONCE DURING THE DAY AND ONCE DURING THE NIGHT
     Route: 061
     Dates: start: 20220314, end: 20220315
  5. Proactiv Post Acne Scar Gel [Concomitant]
     Indication: Acne
     Dosage: 1 DOSAGE FORM, BID, ONCE DURING THE DAY AND ONCE DURING THE NIGHT
     Route: 061
     Dates: start: 20220314, end: 20220315
  6. Proactiv Post Acne Scar Gel [Concomitant]
     Dosage: 1 DOSAGE FORM, BID, ONCE DURING THE DAY AND ONCE DURING THE NIGHT
     Route: 061
     Dates: start: 20220314, end: 20220315

REACTIONS (4)
  - Swelling face [Recovering/Resolving]
  - Skin burning sensation [Not Recovered/Not Resolved]
  - Inappropriate schedule of product administration [Recovered/Resolved]
  - Overdose [Recovered/Resolved]

NARRATIVE: CASE EVENT DATE: 20220314
